FAERS Safety Report 26077613 (Version 1)
Quarter: 2025Q4

REPORT INFORMATION
  Report Type: Spontaneous
  Country: US (occurrence: US)
  Receive Date: 20251121
  Receipt Date: 20251121
  Transmission Date: 20260117
  Serious: No
  Sender: PADAGIS
  Company Number: US-PADAGIS-2025PAD01450

PATIENT

DRUGS (2)
  1. MUPIROCIN [Suspect]
     Active Substance: MUPIROCIN
     Indication: Product used for unknown indication
     Dosage: 3 TIMES A DAY
     Route: 045
  2. MUPIROCIN [Suspect]
     Active Substance: MUPIROCIN
     Dosage: TWICE A DAY
     Route: 045

REACTIONS (2)
  - Condition aggravated [Unknown]
  - Product prescribing error [Unknown]
